FAERS Safety Report 7897527-7 (Version None)
Quarter: 2011Q4

REPORT INFORMATION
  Report Type: 
  Country: None (occurrence: None)
  Receive Date: 20111107
  Receipt Date: 20111028
  Transmission Date: 20120403
  Serious: Yes (Hospitalization)
  Sender: FDA-Public Use
  Company Number: US-UCBSA-044590

PATIENT
  Age: 54 Year
  Sex: Male

DRUGS (9)
  1. CARBAMAZEPINE [Concomitant]
     Indication: EPILEPSY
  2. LYRICA [Concomitant]
  3. LACOSAMIDE [Suspect]
     Indication: EPILEPSY
  4. PHENOBARBITAL TAB [Concomitant]
     Indication: EPILEPSY
  5. TOPIRAMATE [Concomitant]
     Indication: EPILEPSY
  6. PHENYTOIN [Concomitant]
     Indication: EPILEPSY
  7. DIVALPROEX SODIUM [Concomitant]
     Indication: EPILEPSY
  8. LAMOTRIGINE [Concomitant]
     Indication: EPILEPSY
  9. FELBAMATE [Concomitant]
     Indication: EPILEPSY

REACTIONS (1)
  - EPILEPSY [None]
